FAERS Safety Report 9806416 (Version 1)
Quarter: 2014Q1

REPORT INFORMATION
  Report Type: Spontaneous
  Country: JP (occurrence: None)
  Receive Date: 20140107
  Receipt Date: 20140107
  Transmission Date: 20141002
  Serious: Yes (Death)
  Sender: FDA-Public Use
  Company Number: 2013P1022339

PATIENT
  Sex: 0

DRUGS (3)
  1. IRINOTECAN [Suspect]
     Indication: SMALL CELL LUNG CANCER
  2. CISPLATIN [Suspect]
     Dosage: 80 MG/M*2; X1, IV
  3. ETOPOSIDE [Suspect]
     Indication: SMALL CELL LUNG CANCER
     Dosage: 100 MG/M*2; X3;IV

REACTIONS (1)
  - Cerebral infarction [None]
